FAERS Safety Report 4378473-2 (Version None)
Quarter: 2004Q2

REPORT INFORMATION
  Report Type: 
  Country: None (occurrence: None)
  Receive Date: 20040609
  Receipt Date: 20040528
  Transmission Date: 20050107
  Serious: Yes (Hospitalization, Other)
  Sender: FDA-Public Use
  Company Number: 2004210200AU

PATIENT
  Age: 71 Year
  Sex: Female

DRUGS (5)
  1. EXEMESTANE (EXEMESTANE) TABLET [Suspect]
     Indication: BREAST CANCER
     Dosage: 25 MG, QD, ORAL
     Route: 048
     Dates: start: 20010901, end: 20031001
  2. NOTEN [Concomitant]
  3. KAPANOL [Concomitant]
  4. MORPHINE [Concomitant]
  5. PREDNISOLONE [Concomitant]

REACTIONS (9)
  - ATRIAL FIBRILLATION [None]
  - CEREBRAL INFARCTION [None]
  - CEREBROVASCULAR ACCIDENT [None]
  - CONFUSIONAL STATE [None]
  - LUNG ADENOCARCINOMA [None]
  - LUNG CANCER METASTATIC [None]
  - PLEURAL EFFUSION [None]
  - SOCIAL PROBLEM [None]
  - STRESS SYMPTOMS [None]
